FAERS Safety Report 14419004 (Version 1)
Quarter: 2018Q1

REPORT INFORMATION
  Report Type: Spontaneous
  Country: US (occurrence: US)
  Receive Date: 20180122
  Receipt Date: 20180122
  Transmission Date: 20180509
  Serious: Yes (Hospitalization)
  Sender: FDA-Public Use
  Company Number: None

PATIENT
  Age: 57 Year
  Sex: Female
  Weight: 54 kg

DRUGS (2)
  1. OLAPARIB. [Suspect]
     Active Substance: OLAPARIB
     Indication: OVARIAN CANCER
     Route: 048
     Dates: start: 20170719, end: 20171105
  2. TREMELIMUMAB 10 MG/KG [Suspect]
     Active Substance: TREMELIMUMAB
     Indication: OVARIAN CANCER
     Dosage: Q 28 DAYS
     Route: 042
     Dates: start: 20170621, end: 20171011

REACTIONS (7)
  - Nausea [None]
  - Lung infiltration [None]
  - Hypoxia [None]
  - Pneumonitis [None]
  - Vomiting [None]
  - Diarrhoea [None]
  - Pleural effusion [None]

NARRATIVE: CASE EVENT DATE: 20171113
